FAERS Safety Report 6215837-6 (Version None)
Quarter: 2009Q2

REPORT INFORMATION
  Report Type: 
  Country: None (occurrence: None)
  Receive Date: 20090605
  Receipt Date: 20090529
  Transmission Date: 20091009
  Serious: No
  Sender: FDA-Public Use
  Company Number: US-JNJFOC-20090600425

PATIENT
  Sex: Female
  Weight: 90.72 kg

DRUGS (12)
  1. FENTANYL TRANSDERMAL SYSTEM [Suspect]
     Route: 062
  2. FENTANYL TRANSDERMAL SYSTEM [Suspect]
     Indication: BACK PAIN
     Route: 062
  3. OCUVITE LUTEIN [Concomitant]
     Indication: VISUAL IMPAIRMENT
     Route: 048
  4. DIOVAN [Concomitant]
     Route: 048
  5. POTASSIUM CHLORIDE [Concomitant]
     Indication: MINERAL SUPPLEMENTATION
     Route: 048
  6. LASIX [Concomitant]
     Indication: DIURETIC THERAPY
     Route: 048
  7. CYMBALTA [Concomitant]
     Indication: DEPRESSION
     Route: 048
  8. HYDROCODONE BITARTRATE [Concomitant]
     Indication: PAIN
     Dosage: 5-500 MG THRICE A DAY
     Route: 048
  9. ALPRAZOLAM [Concomitant]
     Indication: SLEEP DISORDER
     Route: 048
  10. PRILOSEC [Concomitant]
     Indication: CHOKING
     Route: 048
  11. CALCIUM AND MAGNESIUM [Concomitant]
     Route: 048
  12. UNKNOWN MEDICATION [Concomitant]
     Indication: ABNORMAL FAECES
     Route: 048

REACTIONS (3)
  - APPLICATION SITE IRRITATION [None]
  - DRUG ADMINISTERED AT INAPPROPRIATE SITE [None]
  - WRONG TECHNIQUE IN DRUG USAGE PROCESS [None]
